FAERS Safety Report 15689710 (Version 1)
Quarter: 2018Q4

REPORT INFORMATION
  Report Type: Spontaneous
  Country: GB (occurrence: GB)
  Receive Date: 20181205
  Receipt Date: 20181205
  Transmission Date: 20190205
  Serious: Yes (Other)
  Sender: FDA-Public Use
  Company Number: GB-TEVA-2018-GB-981446

PATIENT
  Sex: Male

DRUGS (1)
  1. SODIUM VALPROATE [Suspect]
     Active Substance: VALPROATE SODIUM
     Dosage: 600 MILLIGRAM DAILY;
     Route: 065
     Dates: start: 20180625

REACTIONS (3)
  - Product dispensing error [Unknown]
  - Seizure [Unknown]
  - Accidental underdose [Unknown]

NARRATIVE: CASE EVENT DATE: 20180625
